FAERS Safety Report 12539213 (Version 2)
Quarter: 2017Q1

REPORT INFORMATION
  Report Type: Spontaneous
  Country: CA (occurrence: CA)
  Receive Date: 20160708
  Receipt Date: 20170113
  Transmission Date: 20170428
  Serious: Yes (Other)
  Sender: FDA-Public Use
  Company Number: CA-ROCHE-1789927

PATIENT
  Age: 71 Year
  Sex: Female

DRUGS (4)
  1. ACTEMRA [Suspect]
     Active Substance: TOCILIZUMAB
     Indication: PRODUCT USED FOR UNKNOWN INDICATION
     Dosage: 20 MG/ML
     Route: 065
     Dates: start: 20151215, end: 20160621
  2. METHOTREXATE SODIUM. [Suspect]
     Active Substance: METHOTREXATE SODIUM
     Indication: RHEUMATOID ARTHRITIS
     Route: 065
  3. SULFASALAZINE. [Suspect]
     Active Substance: SULFASALAZINE
     Indication: RHEUMATOID ARTHRITIS
     Route: 048
     Dates: start: 20150223, end: 20151215
  4. LEFLUNOMIDE. [Suspect]
     Active Substance: LEFLUNOMIDE
     Indication: PRODUCT USED FOR UNKNOWN INDICATION
     Route: 065

REACTIONS (11)
  - Drug intolerance [Unknown]
  - Urticaria [Unknown]
  - Joint swelling [Unknown]
  - Abdominal distension [Unknown]
  - Drug ineffective [Unknown]
  - Bone erosion [Unknown]
  - Synovitis [Unknown]
  - Arthralgia [Unknown]
  - Nausea [Unknown]
  - Hypersensitivity [Unknown]
  - Dyspepsia [Unknown]

NARRATIVE: CASE EVENT DATE: 20160621
